FAERS Safety Report 24110151 (Version 2)
Quarter: 2024Q3

REPORT INFORMATION
  Report Type: Report from Study
  Country: BR (occurrence: BR)
  Receive Date: 20240718
  Receipt Date: 20240807
  Transmission Date: 20241017
  Serious: Yes (Hospitalization, Other)
  Sender: ELI LILLY AND CO
  Company Number: BR-Merck Healthcare KGaA-2024023373

PATIENT
  Age: 56 Year
  Sex: Male

DRUGS (1)
  1. CETUXIMAB [Suspect]
     Active Substance: CETUXIMAB
     Indication: Colorectal cancer metastatic
     Dosage: UNK UNK, 2/M (20 ML OF 10 VIALS)
     Route: 042
     Dates: start: 20181121

REACTIONS (4)
  - Vena cava thrombosis [Not Recovered/Not Resolved]
  - Malignant neoplasm progression [Recovering/Resolving]
  - Pulmonary embolism [Recovering/Resolving]
  - Off label use [Unknown]

NARRATIVE: CASE EVENT DATE: 20231201
